FAERS Safety Report 21133614 (Version 1)
Quarter: 2022Q3

REPORT INFORMATION
  Report Type: Spontaneous
  Country: US (occurrence: None)
  Receive Date: 20220726
  Receipt Date: 20220726
  Transmission Date: 20221027
  Serious: Yes (unspecified)
  Sender: FDA-Public Use
  Company Number: None

PATIENT
  Age: 63 Year
  Sex: Male
  Weight: 127 kg

DRUGS (1)
  1. EMPAGLIFLOZIN [Suspect]
     Active Substance: EMPAGLIFLOZIN
     Indication: Diabetes mellitus
     Dosage: 12.5 MG  AM PO?
     Route: 048
     Dates: start: 20220316, end: 20220722

REACTIONS (4)
  - Genital rash [None]
  - Pruritus [None]
  - Urinary tract infection [None]
  - Urticaria [None]

NARRATIVE: CASE EVENT DATE: 20220722
